FAERS Safety Report 25323661 (Version 1)
Quarter: 2025Q2

REPORT INFORMATION
  Report Type: Spontaneous
  Country: RO (occurrence: RO)
  Receive Date: 20250516
  Receipt Date: 20250516
  Transmission Date: 20250717
  Serious: Yes (Other)
  Sender: MYLAN
  Company Number: RO-AMGEN-ROUSP2025083296

PATIENT
  Age: 57 Year
  Sex: Male

DRUGS (15)
  1. LENALIDOMIDE [Suspect]
     Active Substance: LENALIDOMIDE
     Indication: Plasma cell myeloma
  2. LENALIDOMIDE [Suspect]
     Active Substance: LENALIDOMIDE
  3. LENALIDOMIDE [Suspect]
     Active Substance: LENALIDOMIDE
  4. DEXAMETHASONE [Suspect]
     Active Substance: DEXAMETHASONE
     Indication: Plasma cell myeloma
  5. DEXAMETHASONE [Suspect]
     Active Substance: DEXAMETHASONE
  6. DEXAMETHASONE [Suspect]
     Active Substance: DEXAMETHASONE
  7. KYPROLIS [Suspect]
     Active Substance: CARFILZOMIB
     Indication: Plasma cell myeloma
  8. KYPROLIS [Suspect]
     Active Substance: CARFILZOMIB
  9. KYPROLIS [Suspect]
     Active Substance: CARFILZOMIB
  10. KYPROLIS [Suspect]
     Active Substance: CARFILZOMIB
  11. ELIQUIS [Concomitant]
     Active Substance: APIXABAN
     Dosage: UNK, QD (2 X 5 MG/DAY)
     Dates: start: 202202
  12. CALCIUM\CHOLECALCIFEROL [Concomitant]
     Active Substance: CALCIUM\CHOLECALCIFEROL
     Dosage: UNK, QD (3 TABLET/DAY)
     Dates: start: 202202
  13. .ALPHA.-LIPOIC ACID [Concomitant]
     Active Substance: .ALPHA.-LIPOIC ACID
     Dosage: 600 MILLIGRAM, QD
     Dates: start: 2023
  14. ENOXAPARIN SODIUM [Concomitant]
     Active Substance: ENOXAPARIN SODIUM
     Dosage: UNK, QD (2X0.6 ML/DAY)
  15. ENTECAVIR [Concomitant]
     Active Substance: ENTECAVIR

REACTIONS (5)
  - Loss of consciousness [Recovered/Resolved]
  - Neuropathy peripheral [Recovered/Resolved]
  - Cataract [Unknown]
  - COVID-19 [Recovered/Resolved]
  - Herpes zoster [Recovered/Resolved]

NARRATIVE: CASE EVENT DATE: 20220901
